FAERS Safety Report 10011517 (Version 2)
Quarter: 2014Q1

REPORT INFORMATION
  Report Type: Spontaneous
  Country: IT (occurrence: IT)
  Receive Date: 20140314
  Receipt Date: 20140328
  Transmission Date: 20141002
  Serious: Yes (Other)
  Sender: FDA-Public Use
  Company Number: IT-PFIZER INC-2014073299

PATIENT
  Age: 56 Year
  Sex: Male

DRUGS (4)
  1. IRINOTECAN HCL [Suspect]
     Indication: COLON CANCER
     Dosage: 350 MG, CYCLIC
     Route: 042
     Dates: start: 20080718
  2. AVASTIN [Suspect]
     Indication: COLON CANCER
     Dosage: 430 MG, CYCLIC
     Route: 042
     Dates: start: 20080718, end: 20081005
  3. FLUOROURACIL [Suspect]
     Indication: COLON CANCER
     Dosage: 110 MG, CYCLIC
     Route: 042
     Dates: start: 20080718
  4. LEDERFOLIN [Concomitant]
     Dosage: 390 MG, CYCLIC
     Route: 042

REACTIONS (1)
  - Proteinuria [Recovered/Resolved]
